FAERS Safety Report 15012184 (Version 2)
Quarter: 2018Q2

REPORT INFORMATION
  Report Type: Spontaneous
  Country: JP (occurrence: JP)
  Receive Date: 20180614
  Receipt Date: 20180626
  Transmission Date: 20180711
  Serious: No
  Sender: FDA-Public Use
  Company Number: JP-OTSUKA-2018_013395

PATIENT
  Age: 25 Year
  Sex: Female

DRUGS (1)
  1. ABILIFY [Suspect]
     Active Substance: ARIPIPRAZOLE
     Indication: PRODUCT USED FOR UNKNOWN INDICATION
     Dosage: 40 DF, UNK
     Route: 048

REACTIONS (3)
  - Electrocardiogram QT prolonged [Recovering/Resolving]
  - Overdose [Unknown]
  - Wrong patient received medication [Unknown]

NARRATIVE: CASE EVENT DATE: 20180521
